FAERS Safety Report 5155512-2 (Version None)
Quarter: 2006Q4

REPORT INFORMATION
  Report Type: 
  Country: None (occurrence: None)
  Receive Date: 20061114
  Receipt Date: 20061026
  Transmission Date: 20070319
  Serious: Yes (Hospitalization)
  Sender: FDA-Public Use
  Company Number: US-2006-022183

PATIENT
  Age: 37 Year
  Sex: Female
  Weight: 88.4 kg

DRUGS (10)
  1. BETASERON [Suspect]
     Indication: RELAPSING-REMITTING MULTIPLE SCLEROSIS
     Dosage: 8 MIU, EVERY 2D, SUBCUTANEOUS
     Route: 058
     Dates: start: 20060301, end: 20060802
  2. CLONAZEPAM [Concomitant]
  3. LEXAPRO [Concomitant]
  4. PROGESTERONE CREAM [Concomitant]
  5. SKELAXIN [Concomitant]
  6. ADRENAL REBUILDER FORMULA [Concomitant]
  7. ADRENALIN VITAMIN C [Concomitant]
  8. MULTIPLE VITAMINS (RETINOL) [Concomitant]
  9. CALCIUM (CALCIUM) [Concomitant]
  10. TYLENOL [Concomitant]

REACTIONS (12)
  - ADRENAL DISORDER [None]
  - ALANINE AMINOTRANSFERASE INCREASED [None]
  - ASPARTATE AMINOTRANSFERASE INCREASED [None]
  - BENIGN HEPATIC NEOPLASM [None]
  - BLOOD ALKALINE PHOSPHATASE INCREASED [None]
  - FOCAL NODULAR HYPERPLASIA [None]
  - HAEMANGIOMA [None]
  - HEPATIC ADENOMA [None]
  - HEPATIC CYST [None]
  - HEPATIC ENZYME INCREASED [None]
  - RENAL CYST [None]
  - THROMBOSIS [None]
